FAERS Safety Report 9285460 (Version 9)
Quarter: 2013Q4

REPORT INFORMATION
  Report Type: Spontaneous
  Country: US (occurrence: US)
  Receive Date: 20130513
  Receipt Date: 20131105
  Transmission Date: 20140711
  Serious: No
  Sender: FDA-Public Use
  Company Number: US-PFIZER INC-2013143953

PATIENT
  Age: 53 Year
  Sex: Female
  Weight: 58.5 kg

DRUGS (13)
  1. SUTENT [Suspect]
     Indication: PANCREATIC NEUROENDOCRINE TUMOUR
     Dosage: 37.5 MG, 1X/DAY
     Route: 048
     Dates: start: 20130503, end: 20130508
  2. SUTENT [Suspect]
     Dosage: 25 MG, 1X/DAY
     Route: 048
     Dates: start: 20130508, end: 20130513
  3. SUTENT [Suspect]
     Dosage: 37.5 MG, 1X/DAY
     Route: 048
     Dates: start: 20130513, end: 201305
  4. SUTENT [Suspect]
     Dosage: 25 MG, 1X/DAY
     Route: 048
     Dates: start: 201305, end: 20130523
  5. SUTENT [Suspect]
     Dosage: 12.5 MG, 1X/DAY
     Route: 048
     Dates: start: 20130523
  6. SUTENT [Suspect]
     Dosage: 12.5MG 3 DAYS AND 25MG FOR 4 DAYS
  7. SUTENT [Suspect]
     Dosage: 25 MG, UNK
     Route: 048
     Dates: start: 20130615, end: 20130701
  8. SUTENT [Suspect]
     Dosage: 12.5 MG, 1X/DAY
     Route: 048
     Dates: start: 20130701, end: 20130809
  9. SUTENT [Suspect]
     Dosage: 37.5 MG, UNK
     Route: 048
     Dates: start: 20130809, end: 20130816
  10. RECLAST [Concomitant]
     Dosage: UNK, YEARLY
  11. PROGRAF [Concomitant]
     Dosage: 1 MG, 2X/DAY
  12. TEMAZEPAM [Concomitant]
     Dosage: UNK
  13. CALCIUM [Concomitant]
     Dosage: UNK

REACTIONS (21)
  - Disease progression [Unknown]
  - Pancreatic neuroendocrine tumour [Unknown]
  - Dyspepsia [Recovering/Resolving]
  - Nausea [Not Recovered/Not Resolved]
  - Abdominal distension [Not Recovered/Not Resolved]
  - Dysgeusia [Not Recovered/Not Resolved]
  - Discomfort [Not Recovered/Not Resolved]
  - Anaemia [Unknown]
  - Weight decreased [Unknown]
  - Cough [Unknown]
  - Lung disorder [Unknown]
  - Chills [Unknown]
  - Pyrexia [Unknown]
  - Headache [Unknown]
  - Myalgia [Unknown]
  - Haemoglobin decreased [Unknown]
  - Haematocrit decreased [Unknown]
  - Platelet count decreased [Unknown]
  - White blood cell count increased [Unknown]
  - Gingival bleeding [Unknown]
  - Hair colour changes [Unknown]
